FAERS Safety Report 7092729-4 (Version None)
Quarter: 2010Q4

REPORT INFORMATION
  Report Type: 
  Country: None (occurrence: None)
  Receive Date: 20101109
  Receipt Date: 20101109
  Transmission Date: 20110411
  Serious: No
  Sender: FDA-Public Use
  Company Number: None

PATIENT
  Age: 44 Year
  Sex: Female
  Weight: 140.1615 kg

DRUGS (2)
  1. CARBOPLATIN [Suspect]
     Indication: BREAST CANCER
     Dosage: 500 MG Q2W IVSS
     Route: 042
  2. GEMZAR/CARBO [Concomitant]

REACTIONS (7)
  - ANXIETY [None]
  - BODY TEMPERATURE INCREASED [None]
  - INFUSION RELATED REACTION [None]
  - NAUSEA [None]
  - PRURITUS [None]
  - RESTLESSNESS [None]
  - TINNITUS [None]
